FAERS Safety Report 6147745-3 (Version None)
Quarter: 2009Q2

REPORT INFORMATION
  Report Type: 
  Country: None (occurrence: None)
  Receive Date: 20090408
  Receipt Date: 20090401
  Transmission Date: 20091009
  Serious: Yes (Other)
  Sender: FDA-Public Use
  Company Number: GB-AMGEN-US334489

PATIENT
  Sex: Female
  Weight: 58 kg

DRUGS (6)
  1. ENBREL [Suspect]
     Indication: RHEUMATOID ARTHRITIS
     Route: 058
     Dates: end: 20090201
  2. INDAPAMIDE [Concomitant]
     Dosage: 1.5 MG FREQUENCY UNKNOWN
     Route: 065
     Dates: start: 20050401
  3. CODEINE PHOSPHATE [Concomitant]
     Route: 065
     Dates: start: 19990101
  4. PREMIQUE [Concomitant]
     Indication: HORMONE REPLACEMENT THERAPY
     Dosage: 6.25 MG FREQUENCY UNKNOWN
     Route: 048
  5. LIQUIFILM [Concomitant]
     Dosage: UNKNOWN
     Route: 065
  6. PREDNISOLONE [Concomitant]
     Dosage: 3MG FREQUENCY UNKNOWN
     Route: 048

REACTIONS (4)
  - HYPOAESTHESIA [None]
  - INJECTION SITE PAIN [None]
  - IRIDOCYCLITIS [None]
  - PARAESTHESIA [None]
